FAERS Safety Report 13974951 (Version 1)
Quarter: 2017Q3

REPORT INFORMATION
  Report Type: Other
  Country: GB (occurrence: GB)
  Receive Date: 20170915
  Receipt Date: 20170915
  Transmission Date: 20171128
  Serious: Yes (Hospitalization)
  Sender: FDA-Public Use
  Company Number: GB-RARE DISEASE THERAPEUTICS, INC.-2026406

PATIENT
  Age: 55 Year
  Sex: Male
  Weight: 83.1 kg

DRUGS (2)
  1. PURIXAN [Suspect]
     Active Substance: MERCAPTOPURINE
     Route: 048
  2. VEDOLIZUMAB [Suspect]
     Active Substance: VEDOLIZUMAB
     Route: 042

REACTIONS (4)
  - Cholelithiasis [Unknown]
  - Dilatation intrahepatic duct acquired [Unknown]
  - Biliary dilatation [Unknown]
  - Jaundice cholestatic [Not Recovered/Not Resolved]
